FAERS Safety Report 5396021-5 (Version None)
Quarter: 2007Q3

REPORT INFORMATION
  Report Type: 
  Country: None (occurrence: None)
  Receive Date: 20070724
  Receipt Date: 20070712
  Transmission Date: 20080115
  Serious: Yes (Hospitalization)
  Sender: FDA-Public Use
  Company Number: US-PFIZER INC-2007058440

PATIENT
  Sex: Female
  Weight: 79.8 kg

DRUGS (5)
  1. CELEBREX [Suspect]
     Indication: BACK PAIN
     Route: 048
     Dates: start: 20020601, end: 20030101
  2. IBUPROFEN [Concomitant]
  3. ASPIRIN [Concomitant]
  4. TYLENOL (CAPLET) [Concomitant]
  5. ROFECOXIB [Concomitant]

REACTIONS (1)
  - THROMBOSIS [None]
